FAERS Safety Report 9440696 (Version 3)
Quarter: 2013Q3

REPORT INFORMATION
  Report Type: Spontaneous
  Country: US (occurrence: US)
  Receive Date: 20130805
  Receipt Date: 20130920
  Transmission Date: 20140515
  Serious: Yes (Death, Other)
  Sender: FDA-Public Use
  Company Number: PHEH2013US016264

PATIENT
  Age: 31 Year
  Sex: Female
  Weight: 62.36 kg

DRUGS (16)
  1. GILENYA [Suspect]
     Indication: RELAPSING-REMITTING MULTIPLE SCLEROSIS
     Dosage: 0.5 MG, QD
     Route: 048
     Dates: start: 20110809
  2. ABILIFY [Concomitant]
     Dosage: 10 MG, QD
     Route: 048
  3. FERROUS SULFATE [Concomitant]
     Dosage: 325 MG, BID
     Route: 048
  4. IMITREX ^CERENEX^ [Concomitant]
     Dosage: 25 MG, UNK
     Route: 048
  5. IMODIUM A-D [Concomitant]
     Dosage: 2 MG, UNK
     Route: 048
  6. LAMICTAL [Concomitant]
     Dosage: 150 MG, QD
     Route: 048
  7. LEXAPRO [Concomitant]
     Dosage: 20 MG, QD
     Route: 048
  8. LOMOTIL                            /00034001/ [Concomitant]
     Dosage: 2.5 - 0.25 MG
     Route: 048
  9. NUVIGIL [Concomitant]
     Dosage: 250 MG, QD
     Route: 048
  10. PERCOCET [Concomitant]
     Dosage: 10-325 MG
     Route: 048
  11. POTASSIUM CHLORIDE [Concomitant]
     Dosage: 20 MEQ, QD
     Route: 048
  12. PROCHLORPERAZINE [Concomitant]
     Dosage: 10 MG, TID
     Route: 048
  13. TROSPIUM CHLORIDE [Concomitant]
     Indication: URINARY INCONTINENCE
     Dosage: 20 MG, BID
     Route: 048
  14. XANAX [Concomitant]
     Dosage: 0.5 MG, TID
     Route: 048
  15. RESTORIL [Concomitant]
     Dosage: 7.5 MG, QHS
     Route: 048
  16. ZYBAN [Concomitant]
     Dosage: 150 MG, DAILY
     Route: 048

REACTIONS (22)
  - Cardiac arrest [Fatal]
  - Diverticulum intestinal [Unknown]
  - Gastroduodenitis [Unknown]
  - Gastritis [Unknown]
  - Anaemia [Unknown]
  - Haemoglobin decreased [Unknown]
  - Mean cell haemoglobin concentration decreased [Unknown]
  - Blood iron decreased [Unknown]
  - Red blood cell count decreased [Unknown]
  - Faeces discoloured [Unknown]
  - Haematocrit decreased [Unknown]
  - Mean cell volume decreased [Unknown]
  - Red cell distribution width increased [Unknown]
  - Transferrin increased [Unknown]
  - Iron binding capacity total increased [Unknown]
  - Transferrin saturation decreased [Unknown]
  - Contusion [Unknown]
  - Nausea [Unknown]
  - Vomiting [Unknown]
  - Multiple sclerosis relapse [Unknown]
  - Diarrhoea [Unknown]
  - Lymphocyte count decreased [Unknown]
